FAERS Safety Report 6923121-8 (Version None)
Quarter: 2010Q3

REPORT INFORMATION
  Report Type: 
  Country: None (occurrence: None)
  Receive Date: 20100813
  Receipt Date: 20100804
  Transmission Date: 20110219
  Serious: Yes (Other)
  Sender: FDA-Public Use
  Company Number: AU-ASTRAZENECA-2010SE36586

PATIENT
  Age: 782 Month
  Sex: Male

DRUGS (8)
  1. TENORMIN [Suspect]
     Dates: start: 19850101
  2. TENORMIN [Suspect]
     Dosage: ONE TABLET AT 06:30 AM AND ANOTHER AT 4:30 PM
     Dates: start: 20060101
  3. TENORMIN [Suspect]
     Dates: start: 20100704
  4. ASPIRIN [Concomitant]
  5. SIMVASTATIN [Concomitant]
  6. RAMIPRIL [Concomitant]
  7. NIKOREL [Concomitant]
  8. NORVASC [Concomitant]

REACTIONS (3)
  - DRUG INEFFECTIVE [None]
  - HEART RATE INCREASED [None]
  - MYOCARDIAL INFARCTION [None]
